FAERS Safety Report 24245468 (Version 1)
Quarter: 2024Q3

REPORT INFORMATION
  Report Type: Spontaneous
  Country: SE (occurrence: None)
  Receive Date: 20240824
  Receipt Date: 20240824
  Transmission Date: 20241017
  Serious: Yes (Other)
  Sender: ASTRAZENECA
  Company Number: 2024A192086

PATIENT
  Age: 30 Year
  Sex: Female

DRUGS (16)
  1. QUETIAPINE [Suspect]
     Active Substance: QUETIAPINE
  2. TOUJEO [Concomitant]
     Active Substance: INSULIN GLARGINE
     Dosage: 22 IU IN 1 DAY
     Route: 058
     Dates: start: 20211130
  3. ARCOXIA [Concomitant]
     Active Substance: ETORICOXIB
     Dates: start: 20190319
  4. FERROUS SULFATE [Concomitant]
     Active Substance: FERROUS SULFATE
     Dates: start: 20220729
  5. FLUTICASONE PROPIONATE [Concomitant]
     Active Substance: FLUTICASONE PROPIONATE
     Dosage: IF NEEDED
  6. LEVOTHYROXINE SODIUM [Concomitant]
     Active Substance: LEVOTHYROXINE SODIUM
  7. NOVORAPID [Concomitant]
     Active Substance: INSULIN ASPART
  8. NOVORAPID [Concomitant]
     Active Substance: INSULIN ASPART
  9. ATORVASTATIN [Concomitant]
     Active Substance: ATORVASTATIN
     Dates: start: 20210701
  10. INSULIN ASPART [Concomitant]
     Active Substance: INSULIN ASPART
     Route: 058
     Dates: start: 20170413
  11. BETAMETHASONE DIPROPIONATE [Concomitant]
     Active Substance: BETAMETHASONE DIPROPIONATE
  12. HERBALS\KARAYA GUM [Concomitant]
     Active Substance: HERBALS\KARAYA GUM
  13. UREA [Concomitant]
     Active Substance: UREA
  14. INSULIN HUMAN [Concomitant]
     Active Substance: INSULIN HUMAN
  15. FIASP [Concomitant]
     Active Substance: INSULIN ASPART
  16. DULOXETINE [Concomitant]
     Active Substance: DULOXETINE

REACTIONS (4)
  - Depressed mood [Unknown]
  - Hypomania [Unknown]
  - Fatigue [Unknown]
  - Inappropriate schedule of product administration [Recovered/Resolved]

NARRATIVE: CASE EVENT DATE: 20240101
